FAERS Safety Report 6189687-3 (Version None)
Quarter: 2009Q2

REPORT INFORMATION
  Report Type: 
  Country: None (occurrence: None)
  Receive Date: 20090514
  Receipt Date: 20090506
  Transmission Date: 20091009
  Serious: Yes (Other)
  Sender: FDA-Public Use
  Company Number: FR-NOVOPROD-285043

PATIENT
  Age: 77 Year
  Sex: Female

DRUGS (1)
  1. NOVOMIX 30 FLEXPEN [Suspect]
     Indication: DRUG USE FOR UNKNOWN INDICATION
     Dosage: 24 IU (12 IU IN THE MORNING AND IN EVENING), QD

REACTIONS (2)
  - APHASIA [None]
  - HYPOGLYCAEMIA [None]
